FAERS Safety Report 5520045-8 (Version None)
Quarter: 2007Q4

REPORT INFORMATION
  Report Type: 
  Country: None (occurrence: None)
  Receive Date: 20071116
  Receipt Date: 20071107
  Transmission Date: 20080405
  Serious: Yes (Other)
  Sender: FDA-Public Use
  Company Number: DE-ABBOTT-07P-062-0423707-00

PATIENT
  Sex: Male
  Weight: 118 kg

DRUGS (4)
  1. HUMIRA [Suspect]
     Indication: ANKYLOSING SPONDYLITIS
     Route: 058
  2. METHOTREXATE [Concomitant]
     Indication: ANKYLOSING SPONDYLITIS
  3. SULFASALAZINE [Concomitant]
     Indication: ANKYLOSING SPONDYLITIS
  4. INDOMETHACIN [Concomitant]
     Indication: ANKYLOSING SPONDYLITIS

REACTIONS (5)
  - AORTIC VALVE INCOMPETENCE [None]
  - CARDIOMEGALY [None]
  - HYPERTENSION [None]
  - MITRAL VALVE INCOMPETENCE [None]
  - OEDEMA PERIPHERAL [None]
